FAERS Safety Report 21541158 (Version 1)
Quarter: 2022Q4

REPORT INFORMATION
  Report Type: Spontaneous
  Country: US (occurrence: None)
  Receive Date: 20221031
  Receipt Date: 20221031
  Transmission Date: 20230113
  Serious: Yes (Death, Hospitalization)
  Sender: FDA-Public Use
  Company Number: None

PATIENT

DRUGS (1)
  1. WARFARIN [Suspect]
     Active Substance: WARFARIN

REACTIONS (16)
  - Sepsis [None]
  - Anticoagulation drug level above therapeutic [None]
  - Haemorrhage [None]
  - Aneurysm [None]
  - Cough [None]
  - Asthenia [None]
  - Abdominal discomfort [None]
  - Fall [None]
  - International normalised ratio increased [None]
  - Haematocrit decreased [None]
  - Tachycardia [None]
  - Aortic aneurysm [None]
  - Vascular pseudoaneurysm [None]
  - Therapy interrupted [None]
  - Escherichia bacteraemia [None]
  - Haemoglobin decreased [None]

NARRATIVE: CASE EVENT DATE: 20220122
